FAERS Safety Report 8202936-2 (Version None)
Quarter: 2012Q1

REPORT INFORMATION
  Report Type: 
  Country: None (occurrence: None)
  Receive Date: 20120312
  Receipt Date: 20120307
  Transmission Date: 20120608
  Serious: Yes (Life-Threatening, Hospitalization)
  Sender: FDA-Public Use
  Company Number: CA-ASTRAZENECA-2011SE68746

PATIENT
  Age: 38 Year
  Sex: Male
  Weight: 68.5 kg

DRUGS (3)
  1. NOVO-DILTAZEM CD [Concomitant]
  2. WARFARIN SODIUM [Concomitant]
     Indication: ANTICOAGULANT THERAPY
  3. NEXIUM [Suspect]
     Indication: GASTROOESOPHAGEAL REFLUX DISEASE
     Route: 048
     Dates: start: 20050410, end: 20090419

REACTIONS (1)
  - ATRIAL FIBRILLATION [None]
